FAERS Safety Report 8473536-4 (Version None)
Quarter: 2012Q2

REPORT INFORMATION
  Report Type: 
  Country: None (occurrence: None)
  Receive Date: 20120622
  Receipt Date: 20120622
  Transmission Date: 20120825
  Serious: Yes (Hospitalization)
  Sender: FDA-Public Use
  Company Number: None

PATIENT
  Sex: Male
  Weight: 64.64 kg

DRUGS (1)
  1. ERBITUX [Suspect]
     Dosage: 700 MG

REACTIONS (3)
  - ERYTHEMA [None]
  - BLOOD PRESSURE IMMEASURABLE [None]
  - DYSPNOEA [None]
